FAERS Safety Report 11497868 (Version 6)
Quarter: 2015Q4

REPORT INFORMATION
  Report Type: Report from Study
  Country: CR (occurrence: CR)
  Receive Date: 20150911
  Receipt Date: 20151030
  Transmission Date: 20160304
  Serious: Yes (Life-Threatening, Hospitalization, Other)
  Sender: FDA-Public Use
  Company Number: PHHY2015CR109798

PATIENT
  Sex: Female
  Weight: 56.69 kg

DRUGS (2)
  1. TASIGNA [Suspect]
     Active Substance: NILOTINIB
     Dosage: UNK
     Route: 065
     Dates: start: 201409
  2. TASIGNA [Suspect]
     Active Substance: NILOTINIB
     Indication: CHRONIC MYELOID LEUKAEMIA
     Dosage: 400 MG, Q12H
     Route: 048
     Dates: start: 201405, end: 201407

REACTIONS (20)
  - Feeling abnormal [Unknown]
  - Feeding disorder [Unknown]
  - Erythema [Recovering/Resolving]
  - Headache [Unknown]
  - Gingival bleeding [Unknown]
  - Malaise [Unknown]
  - Rash [Recovering/Resolving]
  - Blood pressure decreased [Unknown]
  - Skin exfoliation [Recovering/Resolving]
  - Blood pressure fluctuation [Unknown]
  - Aplasia [Unknown]
  - Odynophagia [Unknown]
  - Hypersensitivity [Unknown]
  - Pancytopenia [Unknown]
  - Epistaxis [Unknown]
  - Pharyngeal ulceration [Unknown]
  - Fear [Unknown]
  - Product physical issue [Unknown]
  - Vomiting [Recovered/Resolved]
  - Vomiting [Unknown]
